FAERS Safety Report 14092840 (Version 2)
Quarter: 2018Q3

REPORT INFORMATION
  Report Type: Spontaneous
  Country: US (occurrence: US)
  Receive Date: 20171016
  Receipt Date: 20180917
  Transmission Date: 20181010
  Serious: Yes (Hospitalization, Other)
  Sender: FDA-Public Use
  Company Number: US-LEXICON PHARMACEUTICALS, INC-17-1606-00990

PATIENT
  Age: 72 Year
  Sex: Female

DRUGS (1)
  1. TELOTRISTAT ETHYL [Suspect]
     Active Substance: TELOTRISTAT ETHYL
     Indication: CARCINOID TUMOUR
     Route: 048
     Dates: start: 20170615

REACTIONS (8)
  - Hepatomegaly [Unknown]
  - Disease progression [Unknown]
  - Hypotension [Unknown]
  - Pain [Recovered/Resolved]
  - Fluid retention [Unknown]
  - Protein deficiency [Unknown]
  - Peripheral swelling [Unknown]
  - Radioembolisation [Not Recovered/Not Resolved]

NARRATIVE: CASE EVENT DATE: 201708
